FAERS Safety Report 14659593 (Version 1)
Quarter: 2018Q1

REPORT INFORMATION
  Report Type: Spontaneous
  Country: US (occurrence: US)
  Receive Date: 20180320
  Receipt Date: 20180320
  Transmission Date: 20180509
  Serious: No
  Sender: FDA-Public Use
  Company Number: US-PFIZER INC-2018111798

PATIENT
  Sex: Female

DRUGS (4)
  1. LYRICA [Suspect]
     Active Substance: PREGABALIN
     Dosage: 300 (UNIT UNSPECIFIED), UNK
  2. LYRICA [Suspect]
     Active Substance: PREGABALIN
     Indication: NERVE INJURY
     Dosage: 450 MG, DAILY (9 OF THE 50 MG CAPSULES; 3 CAPSULES EVERY 6 HOURS)
     Route: 048
  3. LYRICA [Suspect]
     Active Substance: PREGABALIN
     Dosage: 150 (UNIT UNSPECIFIED), UNK
  4. LYRICA [Suspect]
     Active Substance: PREGABALIN
     Dosage: 100 (UNIT UNSPECIFIED), UNK

REACTIONS (2)
  - Drug effect incomplete [Unknown]
  - Expired product administered [Unknown]
